FAERS Safety Report 8698427 (Version 7)
Quarter: 2013Q1

REPORT INFORMATION
  Report Type: Report from Study
  Country: BR (occurrence: BR)
  Receive Date: 20120802
  Receipt Date: 20130201
  Transmission Date: 20140127
  Serious: Yes (Hospitalization)
  Sender: FDA-Public Use
  Company Number: BR-SANOFI-AVENTIS-2012SA052815

PATIENT
  Age: 74 Year
  Sex: Male

DRUGS (5)
  1. CABAZITAXEL [Suspect]
     Indication: PROSTATE CANCER METASTATIC
     Route: 042
     Dates: start: 20120229, end: 20120229
  2. CABAZITAXEL [Suspect]
     Indication: PROSTATE CANCER METASTATIC
     Route: 042
     Dates: start: 20120705, end: 20120705
  3. PREDNISONE [Suspect]
     Indication: PROSTATE CANCER METASTATIC
     Route: 048
     Dates: start: 20120229, end: 20120722
  4. LEVOTHYROXINE [Concomitant]
     Indication: PROPHYLAXIS
     Route: 048
     Dates: start: 2002
  5. OMEPRAZOLE [Concomitant]
     Indication: PROPHYLAXIS
     Route: 048
     Dates: start: 20120316

REACTIONS (3)
  - Embolism [Not Recovered/Not Resolved]
  - Colitis [Recovered/Resolved]
  - Gallbladder obstruction [Recovered/Resolved]
